FAERS Safety Report 24067918 (Version 1)
Quarter: 2024Q3

REPORT INFORMATION
  Report Type: Spontaneous
  Country: US (occurrence: US)
  Receive Date: 20240710
  Receipt Date: 20240710
  Transmission Date: 20241017
  Serious: No
  Sender: CHATTEM
  Company Number: US-SA-SAC20240628000477

PATIENT
  Age: 26 Year
  Sex: Female

DRUGS (1)
  1. ALLEGRA [Suspect]
     Active Substance: FEXOFENADINE HYDROCHLORIDE
     Indication: Chronic spontaneous urticaria
     Dosage: UNK UNSURE

REACTIONS (2)
  - Drug ineffective [Unknown]
  - No adverse event [Unknown]
